FAERS Safety Report 26130858 (Version 2)
Quarter: 2025Q4

REPORT INFORMATION
  Report Type: Spontaneous
  Country: CN (occurrence: CN)
  Receive Date: 20251208
  Receipt Date: 20251210
  Transmission Date: 20260118
  Serious: Yes (Other)
  Sender: SANOFI AVENTIS
  Company Number: CN-DialogSolutions-SAAVPROD-PI849952-C1

PATIENT
  Sex: Female
  Weight: 60 kg

DRUGS (6)
  1. OXALIPLATIN [Suspect]
     Active Substance: OXALIPLATIN
     Indication: Signet-ring cell carcinoma
     Dosage: 180 MG, QCY(ON DAY 1) (EVERY 3 WEEKS)
     Route: 042
     Dates: start: 20231210, end: 20240418
  2. OXALIPLATIN [Suspect]
     Active Substance: OXALIPLATIN
     Indication: Gastric cancer
  3. OXALIPLATIN [Suspect]
     Active Substance: OXALIPLATIN
     Indication: Metastases to bone marrow
  4. TS-1 [Suspect]
     Active Substance: GIMERACIL\OTERACIL POTASSIUM\TEGAFUR
     Indication: Signet-ring cell carcinoma
     Dosage: 60 MG, BID (ON DAYS 1-14) (REPEATED EVERY 3 WEEKS)
     Route: 048
     Dates: start: 20231210, end: 20240418
  5. TS-1 [Suspect]
     Active Substance: GIMERACIL\OTERACIL POTASSIUM\TEGAFUR
     Indication: Metastases to bone marrow
  6. TS-1 [Suspect]
     Active Substance: GIMERACIL\OTERACIL POTASSIUM\TEGAFUR
     Indication: Gastric cancer

REACTIONS (4)
  - Myelosuppression [Recovered/Resolved]
  - Pancytopenia [Unknown]
  - Anaemia [Unknown]
  - Off label use [Unknown]
